FAERS Safety Report 9444641 (Version 1)
Quarter: 2013Q3

REPORT INFORMATION
  Report Type: Spontaneous
  Country: US (occurrence: US)
  Receive Date: 20130807
  Receipt Date: 20130807
  Transmission Date: 20140515
  Serious: Yes (Other)
  Sender: FDA-Public Use
  Company Number: US-BAYER-2013-095121

PATIENT
  Age: 28 Year
  Sex: Female
  Weight: 57.14 kg

DRUGS (8)
  1. YAZ [Suspect]
  2. ALPRAZOLAM [Concomitant]
     Dosage: 1 MG, UNK
     Route: 048
     Dates: start: 20080407
  3. CIPROFLOXACIN [Concomitant]
     Dosage: 500 MG, UNK
     Route: 048
     Dates: start: 20080408
  4. DIPHENOXYLATE/ATROPINE [Concomitant]
     Dosage: UNK
     Route: 048
     Dates: start: 20080511
  5. METHOCARBAMOL [Concomitant]
     Dosage: 750 MG, UNK
     Route: 048
     Dates: start: 20080522
  6. IBUPROFEN [Concomitant]
     Dosage: 800 MG, UNK
     Route: 048
     Dates: start: 20080522
  7. AMBIEN [Concomitant]
     Indication: INSOMNIA
     Route: 048
  8. ROBAXIN [Concomitant]

REACTIONS (1)
  - Deep vein thrombosis [Recovering/Resolving]
